FAERS Safety Report 7009285-9 (Version None)
Quarter: 2010Q3

REPORT INFORMATION
  Report Type: 
  Country: None (occurrence: None)
  Receive Date: 20100923
  Receipt Date: 20100910
  Transmission Date: 20110219
  Serious: Yes (Other)
  Sender: FDA-Public Use
  Company Number: US-SANOFI-AVENTIS-2010SA056784

PATIENT
  Age: 64 Year
  Sex: Female

DRUGS (7)
  1. ARAVA [Suspect]
     Route: 065
     Dates: start: 20040610, end: 20050302
  2. ARAVA [Suspect]
     Route: 065
     Dates: start: 20050501
  3. ACTIGALL [Concomitant]
  4. AMBIEN [Concomitant]
  5. VISTARIL [Concomitant]
  6. ACTONEL [Concomitant]
  7. VITAMIN TAB [Concomitant]

REACTIONS (1)
  - HEPATOTOXICITY [None]
